FAERS Safety Report 5912671-9 (Version None)
Quarter: 2008Q4

REPORT INFORMATION
  Report Type: 
  Country: None (occurrence: None)
  Receive Date: 20081008
  Receipt Date: 20081003
  Transmission Date: 20090506
  Serious: No
  Sender: FDA-Public Use
  Company Number: US-B.I. PHARMACEUTICALS,INC./RIDGEFIELD-2008-BP-15353BP

PATIENT
  Sex: Female

DRUGS (1)
  1. AGGRENOX [Suspect]
     Indication: PHLEBITIS SUPERFICIAL

REACTIONS (3)
  - CHEST PAIN [None]
  - ERYTHEMA [None]
  - PERIPHERAL COLDNESS [None]
